FAERS Safety Report 9123104 (Version 1)
Quarter: 2013Q1

REPORT INFORMATION
  Report Type: Spontaneous
  Country: US (occurrence: None)
  Receive Date: 20130131
  Receipt Date: 20130131
  Transmission Date: 20140127
  Serious: Yes (Other)
  Sender: FDA-Public Use
  Company Number: ADR-2013UNK004

PATIENT
  Age: 37 Year
  Sex: Male

DRUGS (3)
  1. EFAVIRENZ TABS/(UNK MFR) [Suspect]
     Indication: ACQUIRED IMMUNODEFICIENCY SYNDROME
     Route: 048
  2. ZIDOVUDINE [Concomitant]
  3. LAMIVUDINE [Concomitant]

REACTIONS (1)
  - Dermatitis exfoliative [None]
